FAERS Safety Report 17501546 (Version 1)
Quarter: 2020Q1

REPORT INFORMATION
  Report Type: Spontaneous
  Country: US (occurrence: US)
  Receive Date: 20200304
  Receipt Date: 20200304
  Transmission Date: 20200409
  Serious: Yes (Hospitalization)
  Sender: FDA-Public Use
  Company Number: None

PATIENT
  Age: 50 Year
  Sex: Male
  Weight: 157 kg

DRUGS (3)
  1. CIPROFLOXACIN. [Suspect]
     Active Substance: CIPROFLOXACIN
  2. ZOLPIDEM [Suspect]
     Active Substance: ZOLPIDEM TARTRATE
  3. DULOXETINE. [Suspect]
     Active Substance: DULOXETINE

REACTIONS (2)
  - Hallucination [None]
  - Drug level increased [None]

NARRATIVE: CASE EVENT DATE: 20200304
